FAERS Safety Report 21590797 (Version 1)
Quarter: 2022Q4

REPORT INFORMATION
  Report Type: Spontaneous
  Country: US (occurrence: None)
  Receive Date: 20221111
  Receipt Date: 20221111
  Transmission Date: 20230113
  Serious: Yes (Death)
  Sender: FDA-Public Use
  Company Number: None

PATIENT
  Age: 36 Year
  Sex: Male

DRUGS (4)
  1. FULPHILA [Suspect]
     Active Substance: PEGFILGRASTIM-JMDB
     Indication: Thrombocytopenia
     Dosage: FREQUENCY : AS DIRECTED;?^1 INJECT 0.6ML SUBCUTANEOUSLY ONCE  ON DAY 9 OF EACH?INJECT 20MG SUBCUTANE
     Route: 058
     Dates: start: 202210
  2. FULPHILA [Suspect]
     Active Substance: PEGFILGRASTIM-JMDB
     Indication: Hodgkin^s disease nodular sclerosis
  3. FULPHILA [Suspect]
     Active Substance: PEGFILGRASTIM-JMDB
     Indication: Hodgkin^s disease
  4. FULPHILA [Suspect]
     Active Substance: PEGFILGRASTIM-JMDB
     Indication: Radiotherapy

REACTIONS (1)
  - Death [None]
